FAERS Safety Report 6889579-8 (Version None)
Quarter: 2010Q3

REPORT INFORMATION
  Report Type: 
  Country: None (occurrence: None)
  Receive Date: 20100730
  Receipt Date: 20080505
  Transmission Date: 20110219
  Serious: No
  Sender: FDA-Public Use
  Company Number: US-PFIZER INC-2008024184

PATIENT
  Age: 55 Year
  Sex: Male
  Weight: 88.636 kg

DRUGS (1)
  1. LIPITOR [Suspect]
     Indication: BLOOD CHOLESTEROL INCREASED
     Dates: start: 20050101, end: 20050101

REACTIONS (3)
  - ARTHRALGIA [None]
  - ARTHRITIS [None]
  - MYALGIA [None]
